FAERS Safety Report 16203975 (Version 1)
Quarter: 2019Q2

REPORT INFORMATION
  Report Type: Spontaneous
  Country: US (occurrence: US)
  Receive Date: 20190416
  Receipt Date: 20190416
  Transmission Date: 20190711
  Serious: Yes (Other)
  Sender: FDA-Public Use
  Company Number: US-BAXTER-2019BAX007237

PATIENT
  Age: 67 Year
  Sex: Male

DRUGS (9)
  1. OXALIPLATIN. [Concomitant]
     Active Substance: OXALIPLATIN
     Indication: COLON CANCER STAGE III
     Route: 065
  2. LEUCOVORIN. [Concomitant]
     Active Substance: LEUCOVORIN
     Indication: COLON CANCER STAGE III
     Route: 065
  3. FLUOROURACIL. [Concomitant]
     Active Substance: FLUOROURACIL
     Indication: COLON CANCER STAGE III
     Route: 065
  4. DOXORUBICIN [Concomitant]
     Active Substance: DOXORUBICIN
     Indication: DEDIFFERENTIATED LIPOSARCOMA
     Dosage: 2  CYCLES, DOXORUBICIN 20 MG/M2 PER DAY ON DAYS 1 TO 3
     Route: 041
  5. IFEX [Suspect]
     Active Substance: IFOSFAMIDE
     Indication: DEDIFFERENTIATED LIPOSARCOMA
     Dosage: 2 CYCLES, 2.5 G/M2 PER DAY, ON DAYS 1 TO 3
     Route: 041
  6. MESNA. [Concomitant]
     Active Substance: MESNA
     Indication: SOFT TISSUE SARCOMA
     Dosage: SECOND CYCLE
     Route: 041
  7. DOXORUBICIN [Concomitant]
     Active Substance: DOXORUBICIN
     Indication: SOFT TISSUE SARCOMA
     Dosage: SECOND CYCLE
     Route: 041
  8. IFEX [Suspect]
     Active Substance: IFOSFAMIDE
     Indication: SOFT TISSUE SARCOMA
     Dosage: SECOND CYCLE
     Route: 041
  9. MESNA. [Concomitant]
     Active Substance: MESNA
     Indication: DEDIFFERENTIATED LIPOSARCOMA
     Dosage: 2 CYCLES, 2.5 G/M2 PER DAY ON DAYS 1 TO 4
     Route: 041

REACTIONS (1)
  - Guillain-Barre syndrome [Recovered/Resolved]
